FAERS Safety Report 23668672 (Version 1)
Quarter: 2024Q1

REPORT INFORMATION
  Report Type: Spontaneous
  Country: US (occurrence: None)
  Receive Date: 20240322
  Receipt Date: 20240322
  Transmission Date: 20240409
  Serious: Yes (unspecified)
  Sender: FDA-Public Use
  Company Number: None

PATIENT
  Age: 86 Year
  Sex: Female
  Weight: 99.79 kg

DRUGS (1)
  1. EQUATE SENSITIVE [Suspect]
     Active Substance: POTASSIUM NITRATE\SODIUM FLUORIDE
     Indication: Dental disorder prophylaxis
     Dosage: FREQUENCY : AT BEDTIME;?
     Route: 004
     Dates: start: 20240207, end: 20240210

REACTIONS (4)
  - Tooth discolouration [None]
  - Lip exfoliation [None]
  - Tongue exfoliation [None]
  - Lip blister [None]

NARRATIVE: CASE EVENT DATE: 20240207
